FAERS Safety Report 12194067 (Version 4)
Quarter: 2025Q4

REPORT INFORMATION
  Report Type: Spontaneous
  Country: EU (occurrence: EU)
  Receive Date: 20160321
  Receipt Date: 20251014
  Transmission Date: 20260118
  Serious: Yes (Hospitalization, Other)
  Sender: RANBAXY
  Company Number: None

PATIENT
  Age: 21 Year
  Sex: Male

DRUGS (4)
  1. OCTREOTIDE [Suspect]
     Active Substance: OCTREOTIDE
     Indication: Anaemia
     Dosage: 200 ?G, UNK
     Route: 058
     Dates: start: 201201
  2. OCTREOTIDE [Suspect]
     Active Substance: OCTREOTIDE
     Dosage: 20 MG, UNK
     Route: 058
     Dates: start: 201203, end: 201408
  3. IRON [Concomitant]
     Active Substance: IRON
     Indication: Anaemia
     Dosage: UNK
     Route: 042
  4. VITAMIN K [Concomitant]
     Active Substance: PHYTONADIONE
     Indication: Anaemia
     Dosage: UNK
     Route: 065

REACTIONS (4)
  - Osteonecrosis [Recovering/Resolving]
  - Off label use [Unknown]
  - Discomfort [Unknown]
  - Diarrhoea [Unknown]

NARRATIVE: CASE EVENT DATE: 20120101
